FAERS Safety Report 4787343-7 (Version None)
Quarter: 2005Q4

REPORT INFORMATION
  Report Type: 
  Country: None (occurrence: None)
  Receive Date: 20051003
  Receipt Date: 20050921
  Transmission Date: 20060501
  Serious: Yes (Death)
  Sender: FDA-Public Use
  Company Number: HQWYE604822SEP05

PATIENT
  Age: 44 Year
  Sex: 0

DRUGS (3)
  1. INDERAL [Suspect]
  2. BUPROPION HYDROCHLORIDE [Suspect]
     Dosage: ACUTE ON CHRONIC
  3. LITHIUM CARBONATE [Suspect]

REACTIONS (4)
  - CARDIO-RESPIRATORY ARREST [None]
  - COMPLETED SUICIDE [None]
  - INTENTIONAL DRUG MISUSE [None]
  - MULTIPLE DRUG OVERDOSE [None]
